FAERS Safety Report 5262658-7 (Version None)
Quarter: 2007Q1

REPORT INFORMATION
  Report Type: 
  Country: None (occurrence: None)
  Receive Date: 20070307
  Receipt Date: 20070220
  Transmission Date: 20070707
  Serious: Yes (Other)
  Sender: FDA-Public Use
  Company Number: 2007AP000224

PATIENT
  Sex: Female

DRUGS (1)
  1. PAROXETINE HCL [Suspect]

REACTIONS (5)
  - DRUG INTERACTION [None]
  - DRUG WITHDRAWAL SYNDROME [None]
  - FEELING ABNORMAL [None]
  - SYNCOPE VASOVAGAL [None]
  - VERTIGO [None]
